FAERS Safety Report 14581239 (Version 2)
Quarter: 2018Q3

REPORT INFORMATION
  Report Type: Spontaneous
  Country: US (occurrence: US)
  Receive Date: 20180228
  Receipt Date: 20180817
  Transmission Date: 20181010
  Serious: Yes (Other)
  Sender: FDA-Public Use
  Company Number: US-ASTRAZENECA-2018SE24251

PATIENT
  Age: 71 Year
  Sex: Female
  Weight: 81.2 kg

DRUGS (121)
  1. OMEPRAZOLE. [Suspect]
     Active Substance: OMEPRAZOLE
     Indication: GASTROOESOPHAGEAL REFLUX DISEASE
     Dosage: 10, 40 MG
     Route: 048
     Dates: start: 2010, end: 2016
  2. PREVACID [Suspect]
     Active Substance: LANSOPRAZOLE
     Indication: GASTROOESOPHAGEAL REFLUX DISEASE
     Route: 065
     Dates: start: 2007
  3. PROTONIX [Suspect]
     Active Substance: PANTOPRAZOLE SODIUM
     Indication: GASTROOESOPHAGEAL REFLUX DISEASE
     Dosage: GENERIC? TAKE 1 TABLET BY MOUTH TVVICE DAILY FOR 8 WEEKS THEN DECREASE TO 1 TABLET ONCE DAILY THE...
     Route: 048
     Dates: start: 20160630
  4. ARTHROTEC [Concomitant]
     Active Substance: DICLOFENAC SODIUM\MISOPROSTOL
     Indication: ARTHRITIS
     Dates: start: 2005, end: 2006
  5. MOTRIN [Concomitant]
     Active Substance: IBUPROFEN
     Indication: PAIN
     Dosage: GENERIC? TK 1 T PO TID
     Route: 048
     Dates: start: 20060328
  6. ZANTAC [Concomitant]
     Active Substance: RANITIDINE HYDROCHLORIDE
     Dosage: 75 (OTC)
  7. TRIAMTERENE AND HYDROCHLOROTHIAZIDE [Concomitant]
     Active Substance: HYDROCHLOROTHIAZIDE\TRIAMTERENE
     Dosage: 37.5?25 MG
     Dates: start: 20101119
  8. LORAZEPAM. [Concomitant]
     Active Substance: LORAZEPAM
     Dates: start: 20071129
  9. OXYCODONE?ACETAMINOPHEN [Concomitant]
     Active Substance: ACETAMINOPHEN\OXYCODONE HYDROCHLORIDE
     Indication: PAIN
     Dosage: ROXICET 5?325
     Dates: start: 20091225
  10. OXYCODONE?ACETAMINOPHEN [Concomitant]
     Active Substance: ACETAMINOPHEN\OXYCODONE HYDROCHLORIDE
     Indication: PAIN
     Dosage: OXYCODONE/APAP 10MG/325MG? TK 1 T PO Q 6 H
     Route: 048
     Dates: start: 20070508
  11. DIPHENOXYLATE/ATROPINE [Concomitant]
     Active Substance: ATROPINE\DIPHENOXYLATE
     Dates: start: 20070918
  12. AMLODIPINE BESYLATE AND BENAZEPRIL HYDROCHLORIDE [Concomitant]
     Active Substance: AMLODIPINE BESYLATE\BENAZEPRIL HYDROCHLORIDE
     Dosage: 10?20 MG
     Dates: start: 20100726
  13. FLUVIRIN NOS [Concomitant]
     Active Substance: INFLUENZA VIRUS VACCINE
     Dosage: FLUZONE HIGH?DOSE 2014?150?5ML SYR
     Dates: start: 20140913
  14. CRESTOR [Concomitant]
     Active Substance: ROSUVASTATIN CALCIUM
     Dates: start: 20080709
  15. DOXYCYCLINE HYCLATE. [Concomitant]
     Active Substance: DOXYCYCLINE HYCLATE
     Dates: start: 20160229
  16. RESTASIS [Concomitant]
     Active Substance: CYCLOSPORINE
     Dosage: INT 1 GTT IN OU BID
     Route: 047
     Dates: start: 20060928
  17. MOXIFLOXACIN. [Concomitant]
     Active Substance: MOXIFLOXACIN
     Route: 048
     Dates: start: 20160630
  18. METHYLPREDNISOLONE. [Concomitant]
     Active Substance: METHYLPREDNISOLONE
     Indication: STEROID THERAPY
     Dosage: TK UTD
     Dates: start: 20041202
  19. PREMARIN [Concomitant]
     Active Substance: ESTROGENS, CONJUGATED
     Indication: ANTIOESTROGEN THERAPY
     Dates: start: 20040311
  20. TOBRAMYCIN. [Concomitant]
     Active Substance: TOBRAMYCIN
     Indication: LUNG INFECTION
     Dates: start: 2005
  21. TOBRAMYCIN. [Concomitant]
     Active Substance: TOBRAMYCIN
     Indication: LUNG INFECTION
     Dosage: 0.3% OPHTH SOLN 5ML?INSTILL 1 DROP IN LEFT EYE QID FOR 5 DAYS
     Dates: start: 20051230
  22. ZANTAC [Concomitant]
     Active Substance: RANITIDINE HYDROCHLORIDE
     Dosage: 1970,1989
  23. ZANTAC [Concomitant]
     Active Substance: RANITIDINE HYDROCHLORIDE
     Dosage: 150 (OTC)
  24. PREDNISONE. [Concomitant]
     Active Substance: PREDNISONE
     Dates: start: 20110623
  25. RAMIPRIL. [Concomitant]
     Active Substance: RAMIPRIL
     Dates: start: 20110507
  26. ATENOLOL. [Concomitant]
     Active Substance: ATENOLOL
     Dates: start: 20100715
  27. FLUVIRIN NOS [Concomitant]
     Active Substance: INFLUENZA VIRUS VACCINE
     Dosage: 2010?2011 VIAL
     Dates: start: 20101030
  28. FEXOFENADINE [Concomitant]
     Active Substance: FEXOFENADINE\FEXOFENADINE HYDROCHLORIDE
     Dates: start: 20100324
  29. AMOXICILLIN. [Concomitant]
     Active Substance: AMOXICILLIN
     Dates: start: 20100223
  30. VESICARE [Concomitant]
     Active Substance: SOLIFENACIN SUCCINATE
     Dates: start: 20130808
  31. BACLOFEN. [Concomitant]
     Active Substance: BACLOFEN
     Dates: start: 20130805
  32. BACLOFEN. [Concomitant]
     Active Substance: BACLOFEN
     Route: 048
     Dates: start: 20160508
  33. LEVAQUIN [Concomitant]
     Active Substance: LEVOFLOXACIN
     Route: 048
     Dates: start: 20070508
  34. CELEBREX [Concomitant]
     Active Substance: CELECOXIB
     Route: 048
     Dates: start: 20070104
  35. NEXIUM [Suspect]
     Active Substance: ESOMEPRAZOLE MAGNESIUM
     Indication: GASTROOESOPHAGEAL REFLUX DISEASE
     Route: 048
     Dates: start: 2005, end: 2007
  36. NEXIUM 24HR [Suspect]
     Active Substance: ESOMEPRAZOLE MAGNESIUM
     Route: 048
     Dates: start: 2005, end: 2016
  37. PROTONIX [Suspect]
     Active Substance: PANTOPRAZOLE SODIUM
     Indication: GASTROOESOPHAGEAL REFLUX DISEASE
     Route: 065
     Dates: start: 2006
  38. ARTHROTEC [Concomitant]
     Active Substance: DICLOFENAC SODIUM\MISOPROSTOL
     Indication: ARTHRITIS
     Route: 048
     Dates: start: 20051129
  39. MOTRIN [Concomitant]
     Active Substance: IBUPROFEN
     Indication: PAIN
     Dosage: GENERIC
     Dates: start: 2006
  40. AZITHROMYCIN ANHYDROUS. [Concomitant]
     Active Substance: AZITHROMYCIN ANHYDROUS
     Indication: ANTIBIOTIC THERAPY
     Dates: start: 2006, end: 2014
  41. GLYBURIDE. [Concomitant]
     Active Substance: GLYBURIDE
     Dates: start: 20110506
  42. LORAZEPAM. [Concomitant]
     Active Substance: LORAZEPAM
     Dosage: TAKE 1 TABLET BY MOUTH TWICE A DAY AS NEEDED
     Route: 048
  43. BENICAR HCT [Concomitant]
     Active Substance: HYDROCHLOROTHIAZIDE\OLMESARTAN MEDOXOMIL
     Dosage: 40?12.5 MG
     Route: 048
     Dates: start: 20120104
  44. BENICAR [Concomitant]
     Active Substance: OLMESARTAN MEDOXOMIL
     Dates: start: 20100824
  45. LOVENOX [Concomitant]
     Active Substance: ENOXAPARIN SODIUM
     Dosage: PREFILLED SYRN
     Dates: start: 20091225
  46. CIPROFLOXACIN. [Concomitant]
     Active Substance: CIPROFLOXACIN
     Dates: start: 20150912
  47. MEDOXOMIL?HCTZ [Concomitant]
  48. OMEPRAZOLE. [Suspect]
     Active Substance: OMEPRAZOLE
     Indication: GASTROOESOPHAGEAL REFLUX DISEASE
     Route: 048
     Dates: start: 20110124
  49. PREVACID [Suspect]
     Active Substance: LANSOPRAZOLE
     Indication: GASTROOESOPHAGEAL REFLUX DISEASE
     Dosage: PREVACID? TK ONE T PO D
     Route: 065
     Dates: start: 20071220
  50. PROTONIX [Suspect]
     Active Substance: PANTOPRAZOLE SODIUM
     Indication: GASTROOESOPHAGEAL REFLUX DISEASE
     Route: 065
     Dates: start: 2005, end: 2016
  51. PROTONIX [Suspect]
     Active Substance: PANTOPRAZOLE SODIUM
     Indication: GASTROOESOPHAGEAL REFLUX DISEASE
     Route: 065
     Dates: start: 2007
  52. DIOVAN [Concomitant]
     Active Substance: VALSARTAN
     Indication: HYPERTENSION
     Dates: start: 20041022
  53. ASPIRIN. [Concomitant]
     Active Substance: ASPIRIN
     Indication: ANTICOAGULANT THERAPY
     Route: 048
     Dates: start: 2014, end: 2017
  54. PEPCID AC [Concomitant]
     Active Substance: FAMOTIDINE
     Dosage: OTC, 1990,1984
  55. ZANTAC [Concomitant]
     Active Substance: RANITIDINE HYDROCHLORIDE
     Dosage: 150 (PRESCRIPTION)
  56. TUMS [Concomitant]
     Active Substance: CALCIUM CARBONATE
     Dosage: 2017, 1998
  57. NASONEX [Concomitant]
     Active Substance: MOMETASONE FUROATE
     Dosage: 50 MCG/AC SPR? USE 2 SPR~YS LEN BID PRN
     Dates: start: 20070227
  58. CLONIDINE HYDROCHLORIDE. [Concomitant]
     Active Substance: CLONIDINE HYDROCHLORIDE
     Indication: HYPERTENSION
     Dates: start: 2007, end: 2015
  59. ALPRAZOLAM. [Concomitant]
     Active Substance: ALPRAZOLAM
     Dates: start: 20111012
  60. LISINOPRIL. [Concomitant]
     Active Substance: LISINOPRIL
     Dates: start: 20100307
  61. LOVENOX [Concomitant]
     Active Substance: ENOXAPARIN SODIUM
     Dosage: 40 MG/0.4 ML SYR
     Dates: start: 20130805
  62. SULFAMETHOXAZOLE [Concomitant]
     Active Substance: SULFAMETHOXAZOLE
     Dates: start: 20091225
  63. METOPROLOL. [Concomitant]
     Active Substance: METOPROLOL
     Dates: start: 20100629
  64. AMOXICILLIN. [Concomitant]
     Active Substance: AMOXICILLIN
     Route: 048
     Dates: start: 20070104
  65. METHOCARBAMOL. [Concomitant]
     Active Substance: METHOCARBAMOL
     Dates: start: 20120630
  66. CARISOPRODOL. [Concomitant]
     Active Substance: CARISOPRODOL
     Indication: MUSCLE SPASMS
     Route: 048
     Dates: start: 20070508
  67. NEXIUM [Suspect]
     Active Substance: ESOMEPRAZOLE MAGNESIUM
     Indication: GASTROOESOPHAGEAL REFLUX DISEASE
     Route: 048
     Dates: start: 20051004
  68. OMEPRAZOLE. [Suspect]
     Active Substance: OMEPRAZOLE
     Indication: GASTROOESOPHAGEAL REFLUX DISEASE
     Route: 048
     Dates: start: 20080528
  69. PREVACID [Suspect]
     Active Substance: LANSOPRAZOLE
     Indication: GASTROOESOPHAGEAL REFLUX DISEASE
     Route: 065
     Dates: start: 2008
  70. PROTONIX [Suspect]
     Active Substance: PANTOPRAZOLE SODIUM
     Indication: GASTROOESOPHAGEAL REFLUX DISEASE
     Route: 048
     Dates: start: 20060328
  71. MOTRIN [Concomitant]
     Active Substance: IBUPROFEN
     Indication: PAIN
     Dates: start: 2006
  72. MILK OF MAGNESIA [Concomitant]
     Active Substance: MAGNESIUM HYDROXIDE
     Dosage: 2014, 2016, 2017? 2 TIMES A WEEK
  73. LOVASTATIN. [Concomitant]
     Active Substance: LOVASTATIN
     Dates: start: 20111020
  74. LORAZEPAM. [Concomitant]
     Active Substance: LORAZEPAM
     Route: 048
     Dates: start: 20070816
  75. AMLODIPINE BESYLATE. [Concomitant]
     Active Substance: AMLODIPINE BESYLATE
     Dates: start: 20090313
  76. PHENAZOPYRIDINE. [Concomitant]
     Active Substance: PHENAZOPYRIDINE
     Dates: start: 20150912
  77. OMNICEF [Concomitant]
     Active Substance: CEFDINIR
     Dates: start: 20051230
  78. VERELAN [Concomitant]
     Active Substance: VERAPAMIL HYDROCHLORIDE
     Dosage: VERAPAMIL
     Dates: start: 20080528
  79. NASAREL [Concomitant]
     Active Substance: FLUNISOLIDE
     Dosage: 29MCG/0.025% NASAL SOL 25ML? SPR TWICE LEN BID PRN
     Dates: start: 20070227
  80. SULINDAC. [Concomitant]
     Active Substance: SULINDAC
     Indication: ARTHRALGIA
     Dosage: TAKE 1 TABLET BY MOUTH TWICE DAILY FOR 3 DAYS THEN 1 TABLET TWICE DAILY AS NEEDED
     Route: 048
     Dates: start: 20160508
  81. NEXIUM [Suspect]
     Active Substance: ESOMEPRAZOLE MAGNESIUM
     Indication: GASTROOESOPHAGEAL REFLUX DISEASE
     Route: 048
     Dates: start: 2005, end: 2016
  82. PRILOSEC OTC [Suspect]
     Active Substance: OMEPRAZOLE MAGNESIUM
     Route: 048
     Dates: start: 2005, end: 2016
  83. PROTONIX [Suspect]
     Active Substance: PANTOPRAZOLE SODIUM
     Indication: GASTROOESOPHAGEAL REFLUX DISEASE
     Dosage: GENERIC
     Route: 065
     Dates: start: 2016
  84. DIOVAN [Concomitant]
     Active Substance: VALSARTAN
     Indication: HYPERTENSION
     Dates: start: 2004, end: 2011
  85. AZITHROMYCIN ANHYDROUS. [Concomitant]
     Active Substance: AZITHROMYCIN ANHYDROUS
     Indication: ANTIBIOTIC THERAPY
     Dosage: TK UTD
     Dates: start: 20060425
  86. PEPTO?BISMOL [Concomitant]
     Active Substance: BISMUTH SUBSALICYLATE
     Dates: start: 1990
  87. LOSARTAN POTASSIUM. [Concomitant]
     Active Substance: LOSARTAN POTASSIUM
     Dates: start: 20110531
  88. TRAMADOL HYDROCHLORIDE. [Concomitant]
     Active Substance: TRAMADOL HYDROCHLORIDE
     Indication: PAIN
     Dosage: TK 1 T PO QID PRN OR TAKE 1 TABLET BY MOUTH 4 TIMES A DAY AS NEEDED
     Route: 048
     Dates: start: 20120120
  89. HYDROCHLOROTHIAZIDE. [Concomitant]
     Active Substance: HYDROCHLOROTHIAZIDE
     Route: 048
     Dates: start: 20070121
  90. LISINOPRIL. [Concomitant]
     Active Substance: LISINOPRIL
     Dates: start: 20101115
  91. AMOX TR?K CLV [Concomitant]
     Active Substance: AMOXICILLIN\CLAVULANATE POTASSIUM
     Dosage: 875?125 MG
     Dates: start: 20140723
  92. LOSARTAN/HCT [Concomitant]
     Active Substance: HYDROCHLOROTHIAZIDE\LOSARTAN POTASSIUM
     Dosage: 50?12.5MG
     Dates: start: 20100708
  93. METOPROLOL. [Concomitant]
     Active Substance: METOPROLOL
     Dosage: METOPROLOL TARTRATE? TAKE 1 TABLET TWICE DAILY
     Route: 048
  94. CIPROFLOXACIN. [Concomitant]
     Active Substance: CIPROFLOXACIN
     Dosage: 0.3% OPHTH SOLN 5ML (EYE)? INSTILL 1 DROP IN EACH EYE QID FOR 7 DAYS
     Dates: start: 20140731
  95. PREVACID [Suspect]
     Active Substance: LANSOPRAZOLE
     Indication: GASTROOESOPHAGEAL REFLUX DISEASE
     Route: 065
     Dates: start: 2005, end: 2016
  96. DIOVAN [Concomitant]
     Active Substance: VALSARTAN
     Indication: HYPERTENSION
     Dates: start: 20080204
  97. METHYLPREDNISOLONE. [Concomitant]
     Active Substance: METHYLPREDNISOLONE
     Indication: STEROID THERAPY
     Dates: start: 2004
  98. MOTRIN [Concomitant]
     Active Substance: IBUPROFEN
     Indication: PAIN
     Route: 048
     Dates: start: 20060803
  99. HYDRALAZINE HYDROCHLORIDE. [Concomitant]
     Active Substance: HYDRALAZINE HYDROCHLORIDE
     Dates: start: 20110803
  100. CLONIDINE HYDROCHLORIDE. [Concomitant]
     Active Substance: CLONIDINE HYDROCHLORIDE
     Indication: HYPERTENSION
     Dosage: CATAPRES?TISO.3/24HRDLS
     Dates: start: 20070215
  101. SIMVASTATIN. [Concomitant]
     Active Substance: SIMVASTATIN
     Route: 048
     Dates: start: 20091225
  102. OXYCODONE?ACETAMINOPHEN [Concomitant]
     Active Substance: ACETAMINOPHEN\OXYCODONE HYDROCHLORIDE
     Indication: PAIN
     Dosage: 5?325 MG? TAKE 1 TABLET BY MOUTH EVERY 4 TO 6 HOURS AS NEEDED
     Route: 048
     Dates: start: 20160220
  103. CYCLOBENZAPRINE. [Concomitant]
     Active Substance: CYCLOBENZAPRINE
     Dates: start: 20070804
  104. DICLOFENAC SODIUM. [Concomitant]
     Active Substance: DICLOFENAC SODIUM
     Dates: start: 20080709
  105. PROMETHAZINE [Concomitant]
     Active Substance: PROMETHAZINE\PROMETHAZINE HYDROCHLORIDE
     Dates: start: 20100820
  106. AMLODIPINE BESYLATE. [Concomitant]
     Active Substance: AMLODIPINE BESYLATE
     Dates: start: 20100824
  107. NIFEDIPINE. [Concomitant]
     Active Substance: NIFEDIPINE
     Dates: start: 20140902
  108. FERROUS SULFATE. [Concomitant]
     Active Substance: FERROUS SULFATE
     Dates: start: 20091225
  109. FOLIC ACID. [Concomitant]
     Active Substance: FOLIC ACID
     Dates: start: 20091225
  110. FLUCONAZOLE. [Concomitant]
     Active Substance: FLUCONAZOLE
     Dates: start: 20141118
  111. ALLEGRA?D 24HR [Concomitant]
     Dates: start: 20100414
  112. ZYMAR [Concomitant]
     Active Substance: GATIFLOXACIN
     Dosage: 0.3% OPHTH SOLN 5ML? INT 1 GTT QID IN OS
     Dates: start: 20060705
  113. SINGULAIR [Concomitant]
     Active Substance: MONTELUKAST SODIUM
     Dates: start: 20060517
  114. PREMARIN [Concomitant]
     Active Substance: ESTROGENS, CONJUGATED
     Indication: ANTIOESTROGEN THERAPY
     Dates: start: 2004, end: 2008
  115. TYLENOL [Concomitant]
     Active Substance: ACETAMINOPHEN
     Indication: ARTHRITIS
     Dates: start: 2014, end: 2017
  116. CENTRUM SILVER [Concomitant]
     Active Substance: MINERALS\VITAMINS
     Indication: SUPPLEMENTATION THERAPY
     Dates: start: 2007, end: 2008
  117. SIMVASTATIN. [Concomitant]
     Active Substance: SIMVASTATIN
     Dates: start: 20110530
  118. CLONIDINE HYDROCHLORIDE. [Concomitant]
     Active Substance: CLONIDINE HYDROCHLORIDE
     Indication: HYPERTENSION
     Route: 048
     Dates: start: 20070120
  119. FLUTICASONE. [Concomitant]
     Active Substance: FLUTICASONE
     Dosage: PROP 50 MCG SPRAY
     Dates: start: 20100820
  120. ACETAMI/CODEIN [Concomitant]
     Dosage: 300?30 MG
     Dates: start: 20090205
  121. VERELAN [Concomitant]
     Active Substance: VERAPAMIL HYDROCHLORIDE
     Dates: start: 20070227

REACTIONS (4)
  - Chronic kidney disease [Not Recovered/Not Resolved]
  - End stage renal disease [Not Recovered/Not Resolved]
  - Constipation [Not Recovered/Not Resolved]
  - Renal injury [Not Recovered/Not Resolved]

NARRATIVE: CASE EVENT DATE: 2014
